FAERS Safety Report 10996467 (Version 2)
Quarter: 2015Q3

REPORT INFORMATION
  Report Type: Report from Study
  Country: US (occurrence: US)
  Receive Date: 20150408
  Receipt Date: 20150812
  Transmission Date: 20151125
  Serious: Yes (Death, Other)
  Sender: FDA-Public Use
  Company Number: US-GILEAD-2015-0147132

PATIENT
  Age: 72 Year
  Sex: Male

DRUGS (14)
  1. COREG [Concomitant]
     Active Substance: CARVEDILOL
  2. AMIODARONE [Concomitant]
     Active Substance: AMIODARONE
  3. ALFUZOSIN [Concomitant]
     Active Substance: ALFUZOSIN
  4. LISINOPRIL. [Concomitant]
     Active Substance: LISINOPRIL
  5. WARFARIN [Concomitant]
     Active Substance: WARFARIN
  6. LEVOTHYROXINE. [Concomitant]
     Active Substance: LEVOTHYROXINE
  7. AMBRISENTAN [Suspect]
     Active Substance: AMBRISENTAN
     Indication: PULMONARY ARTERIAL HYPERTENSION
     Dosage: 5 MG, QD
     Route: 065
     Dates: start: 20120907, end: 20150327
  8. OMEPRAZOLE. [Concomitant]
     Active Substance: OMEPRAZOLE
  9. LOVASTATIN. [Concomitant]
     Active Substance: LOVASTATIN
  10. ADCIRCA [Concomitant]
     Active Substance: TADALAFIL
  11. TYVASO [Concomitant]
     Active Substance: TREPROSTINIL
  12. ZEMPLAR [Concomitant]
     Active Substance: PARICALCITOL
  13. CELLCEPT [Concomitant]
     Active Substance: MYCOPHENOLATE MOFETIL\MYCOPHENOLATE MOFETIL HYDROCHLORIDE
  14. PROCRIT [Concomitant]
     Active Substance: ERYTHROPOIETIN

REACTIONS (1)
  - Disease progression [Fatal]
